FAERS Safety Report 7765660-6 (Version None)
Quarter: 2011Q3

REPORT INFORMATION
  Report Type: 
  Country: None (occurrence: None)
  Receive Date: 20110921
  Receipt Date: 20110916
  Transmission Date: 20111222
  Serious: Yes (Hospitalization)
  Sender: FDA-Public Use
  Company Number: SE-PFIZER INC-2011219590

PATIENT
  Age: 76 Year
  Sex: Female

DRUGS (5)
  1. WARFARIN SODIUM [Concomitant]
     Dosage: UNK
  2. CLINDAMYCIN HCL [Suspect]
     Indication: THROMBOPHLEBITIS
     Dosage: UNK
     Route: 048
     Dates: start: 20110701, end: 20110701
  3. BRICANYL [Concomitant]
     Dosage: UNK
  4. SYMBICORT [Concomitant]
     Dosage: UNK
  5. METOPROLOL SUCCINATE [Concomitant]
     Dosage: UNK

REACTIONS (1)
  - LARYNGEAL OEDEMA [None]
